FAERS Safety Report 20449625 (Version 2)
Quarter: 2022Q1

REPORT INFORMATION
  Report Type: Spontaneous
  Country: FR (occurrence: FR)
  Receive Date: 20220209
  Receipt Date: 20220214
  Transmission Date: 20220423
  Serious: Yes (Death, Other)
  Sender: FDA-Public Use
  Company Number: None

PATIENT
  Sex: Male
  Weight: .8 kg

DRUGS (16)
  1. COMIRNATY [Suspect]
     Active Substance: TOZINAMERAN
     Indication: COVID-19 immunisation
     Dosage: DOSE NUMBER UNKNOWN, 0.3ML SINGLE
     Route: 064
     Dates: start: 20210502, end: 20210502
  2. PANTOPRAZOLE [Suspect]
     Active Substance: PANTOPRAZOLE
     Indication: Gastrooesophageal reflux disease
     Dosage: 20 MILLIGRAM, QD
     Route: 064
     Dates: start: 20210815, end: 20210816
  3. CLAVULANIC ACID [Suspect]
     Active Substance: CLAVULANIC ACID
     Indication: Appendicitis perforated
     Dosage: 275 MILLIGRAM, QD
     Route: 064
     Dates: start: 20210816, end: 20210817
  4. CEFOTAXIME [Suspect]
     Active Substance: CEFOTAXIME SODIUM
     Indication: Appendicitis perforated
     Dosage: 3 GRAM, QD
     Route: 064
     Dates: start: 20210810, end: 20210815
  5. SERTACONAZOLE NITRATE [Suspect]
     Active Substance: SERTACONAZOLE NITRATE
     Indication: Vulvovaginal mycotic infection
     Dosage: 1 DF, SINGLE
     Route: 064
     Dates: start: 20210804, end: 20210804
  6. ENOXAPARIN SODIUM [Suspect]
     Active Substance: ENOXAPARIN SODIUM
     Indication: Prophylaxis
     Dosage: 4000 IU, 1X/DAY
     Route: 064
     Dates: start: 20210810, end: 20210816
  7. ACETAMINOPHEN [Suspect]
     Active Substance: ACETAMINOPHEN
     Indication: Pain
     Dosage: 4 GRAM, QD
     Route: 064
     Dates: start: 20210808, end: 20210816
  8. METRONIDAZOLE [Suspect]
     Active Substance: METRONIDAZOLE
     Indication: Appendicitis perforated
     Dosage: 3 GRAM, QD
     Route: 064
     Dates: start: 20210810, end: 20210815
  9. AMOXICILLIN [Suspect]
     Active Substance: AMOXICILLIN
     Indication: Appendicitis perforated
     Dosage: 3 GRAM, QD
     Route: 064
     Dates: start: 20210816, end: 20210817
  10. TRAMADOL HYDROCHLORIDE [Suspect]
     Active Substance: TRAMADOL HYDROCHLORIDE
     Indication: Pain
     Dosage: 100 MILLIGRAM, QD
     Route: 064
     Dates: start: 20210808, end: 20210816
  11. LEVOTHYROXINE [Suspect]
     Active Substance: LEVOTHYROXINE
     Indication: Hypothyroidism
     Dosage: 50 MICROGRAM, QD
     Route: 064
     Dates: start: 20210505, end: 20211019
  12. LEVOTHYROXINE [Suspect]
     Active Substance: LEVOTHYROXINE
     Indication: Autoimmune thyroiditis
  13. PHLOROGLUCINOL [Suspect]
     Active Substance: PHLOROGLUCINOL
     Indication: Pain
     Dosage: 240 MILLIGRAM, QD
     Route: 064
     Dates: start: 20210808, end: 20210816
  14. NEFOPAM HYDROCHLORIDE [Suspect]
     Active Substance: NEFOPAM HYDROCHLORIDE
     Indication: Pain
     Dosage: 80 MILLIGRAM, QD
     Route: 064
     Dates: start: 20210810, end: 20210813
  15. ONDANSETRON HYDROCHLORIDE [Suspect]
     Active Substance: ONDANSETRON HYDROCHLORIDE
     Indication: Nausea
     Dosage: 16 MILLIGRAM, QD
     Route: 064
     Dates: start: 20210810, end: 20210815
  16. ROPIVACAINE HYDROCHLORIDE [Suspect]
     Active Substance: ROPIVACAINE HYDROCHLORIDE
     Indication: Anaesthesia
     Dosage: 20 MILLILITER, QD
     Route: 064
     Dates: start: 20210810, end: 20210810

REACTIONS (4)
  - Maternal exposure during pregnancy [Fatal]
  - Urethral valves [Fatal]
  - Renal failure [Fatal]
  - Foetal exposure during pregnancy [Unknown]

NARRATIVE: CASE EVENT DATE: 20210502
